FAERS Safety Report 5928086-3 (Version None)
Quarter: 2008Q4

REPORT INFORMATION
  Report Type: 
  Country: None (occurrence: None)
  Receive Date: 20081023
  Receipt Date: 20081014
  Transmission Date: 20090506
  Serious: Yes (Death, Hospitalization)
  Sender: FDA-Public Use
  Company Number: B0541583A

PATIENT
  Sex: Male

DRUGS (1)
  1. ARIXTRA [Suspect]
     Indication: CEREBROVASCULAR ACCIDENT
     Dosage: 7.5MG PER DAY
     Route: 058

REACTIONS (1)
  - CEREBRAL HAEMATOMA [None]
